FAERS Safety Report 5587482-7 (Version None)
Quarter: 2007Q4

REPORT INFORMATION
  Report Type: 
  Country: None (occurrence: None)
  Receive Date: 20071207
  Receipt Date: 20070610
  Transmission Date: 20080405
  Serious: Yes (Other)
  Sender: FDA-Public Use
  Company Number: 2007047006

PATIENT
  Sex: Male

DRUGS (1)
  1. VIAGRA [Suspect]

REACTIONS (4)
  - DRUG INEFFECTIVE [None]
  - ERECTION INCREASED [None]
  - ERYTHEMA [None]
  - INTENTIONAL DRUG MISUSE [None]
